FAERS Safety Report 24025451 (Version 1)
Quarter: 2024Q2

REPORT INFORMATION
  Report Type: Report from Study
  Country: US (occurrence: US)
  Receive Date: 20240628
  Receipt Date: 20240628
  Transmission Date: 20240716
  Serious: Yes (Death)
  Sender: FDA-Public Use
  Company Number: US-ABBVIE-5817769

PATIENT
  Age: 93 Year
  Weight: 45 kg

DRUGS (1)
  1. CREON [Suspect]
     Active Substance: PANCRELIPASE AMYLASE\PANCRELIPASE LIPASE\PANCRELIPASE PROTEASE
     Indication: Pancreatic failure
     Dosage: FORM STRENGTH: 36000 UNIT, FREQUENCY TEXT: 1 PER MEAL?START DATE TEXT: 3 YRS OR MORE
     Route: 048
     Dates: end: 202404

REACTIONS (1)
  - Spinal compression fracture [Fatal]

NARRATIVE: CASE EVENT DATE: 20240401
